FAERS Safety Report 5789113-X (Version None)
Quarter: 2008Q2

REPORT INFORMATION
  Report Type: 
  Country: None (occurrence: None)
  Receive Date: 20080625
  Receipt Date: 20080625
  Transmission Date: 20081010
  Serious: Yes (Hospitalization)
  Sender: FDA-Public Use
  Company Number: None

PATIENT
  Sex: Male
  Weight: 72 kg

DRUGS (7)
  1. SUNITINIB [Suspect]
     Indication: RENAL CANCER METASTATIC
     Dosage: 50 MG QD PO
     Route: 048
     Dates: start: 20080409, end: 20080527
  2. OXYCONTIN [Concomitant]
  3. OXYCODONE HCL [Concomitant]
  4. M.V.I. [Concomitant]
  5. NORVASC [Concomitant]
  6. ATACAND [Concomitant]
  7. LIPITOR [Concomitant]

REACTIONS (4)
  - DISEASE PROGRESSION [None]
  - DYSPNOEA [None]
  - METASTASIS [None]
  - PLEURAL EFFUSION [None]
